FAERS Safety Report 9263945 (Version 5)
Quarter: 2013Q4

REPORT INFORMATION
  Report Type: Spontaneous
  Country: US (occurrence: US)
  Receive Date: 20130430
  Receipt Date: 20131031
  Transmission Date: 20140711
  Serious: Yes (Other)
  Sender: FDA-Public Use
  Company Number: US-009507513-1304USA016941

PATIENT
  Sex: Female
  Weight: 72.56 kg

DRUGS (2)
  1. NUVARING [Suspect]
     Indication: CONTRACEPTION
     Dosage: UNK
     Route: 067
     Dates: start: 200701, end: 20100505
  2. NUVARING [Suspect]
     Indication: MENSTRUATION IRREGULAR

REACTIONS (32)
  - Hypoaesthesia [Unknown]
  - Headache [Not Recovered/Not Resolved]
  - Abdominal pain [Not Recovered/Not Resolved]
  - Pain [Not Recovered/Not Resolved]
  - Joint injury [Unknown]
  - Paraesthesia [Unknown]
  - Headache [Unknown]
  - Sensation of heaviness [Unknown]
  - Dizziness [Unknown]
  - Urinary tract infection [Unknown]
  - Hypoaesthesia [Unknown]
  - Sensation of heaviness [Unknown]
  - Caesarean section [Unknown]
  - Deep vein thrombosis [Recovered/Resolved]
  - Off label use [Recovered/Resolved]
  - Post-traumatic stress disorder [Unknown]
  - Depression [Unknown]
  - Maternal exposure before pregnancy [Unknown]
  - Pain in extremity [Not Recovered/Not Resolved]
  - Back pain [Not Recovered/Not Resolved]
  - Hypochondriasis [Not Recovered/Not Resolved]
  - Uterine disorder [Unknown]
  - Hypercoagulation [Unknown]
  - Embolism [Unknown]
  - Abdominal pain upper [Unknown]
  - Local swelling [Unknown]
  - Pain in extremity [Unknown]
  - Headache [Unknown]
  - Constipation [Unknown]
  - Treatment noncompliance [Unknown]
  - Nausea [Unknown]
  - Conjunctivitis [Unknown]
